FAERS Safety Report 15768207 (Version 1)
Quarter: 2018Q4

REPORT INFORMATION
  Report Type: Spontaneous
  Country: US (occurrence: US)
  Receive Date: 20181227
  Receipt Date: 20181227
  Transmission Date: 20190205
  Serious: Yes (Other)
  Sender: FDA-Public Use
  Company Number: US-GILEAD-2018-0381338

PATIENT
  Age: 62 Year
  Sex: Male
  Weight: 118.4 kg

DRUGS (1)
  1. YESCARTA [Suspect]
     Active Substance: AXICABTAGENE CILOLEUCEL
     Indication: DIFFUSE LARGE B-CELL LYMPHOMA
     Dosage: UNK
     Route: 065
     Dates: start: 20181025, end: 20181025

REACTIONS (9)
  - Tachycardia [Unknown]
  - Neurotoxicity [Unknown]
  - Somnolence [Unknown]
  - Tremor [Unknown]
  - Fatigue [Unknown]
  - Pyrexia [Unknown]
  - Headache [Unknown]
  - Cytokine release syndrome [Unknown]
  - Agitation [Unknown]

NARRATIVE: CASE EVENT DATE: 20181029
